FAERS Safety Report 9344110 (Version 2)
Quarter: 2013Q3

REPORT INFORMATION
  Report Type: Report from Study
  Country: AU (occurrence: AU)
  Receive Date: 20130612
  Receipt Date: 20130808
  Transmission Date: 20140515
  Serious: Yes (Death, Hospitalization, Other)
  Sender: FDA-Public Use
  Company Number: PHHY2013AU059537

PATIENT
  Age: 80 Year
  Sex: Female

DRUGS (9)
  1. ACLASTA [Suspect]
     Indication: OSTEOPOROSIS
     Dosage: 5 MG, UNK
     Route: 042
     Dates: start: 20090603
  2. ACLASTA [Suspect]
     Dosage: 5 MG, UNK
     Route: 042
     Dates: start: 20100527
  3. ACLASTA [Suspect]
     Dosage: 5 MG, UNK
     Route: 042
     Dates: start: 20110729
  4. ACLASTA [Suspect]
     Dosage: 5 MG, UNK
     Route: 042
     Dates: start: 20120726
  5. ZIMSTAT [Concomitant]
     Indication: HYPERLIPIDAEMIA
     Dosage: 20 MG, 1 BEFORE BED
  6. OVESTIN [Concomitant]
     Dosage: APPLY TWISE A WEEK TO VULVA
     Route: 067
  7. OSTELIN VITAMIN D + CALCIUM [Concomitant]
     Indication: OSTEOPOROSIS
     Dosage: 500IU:1500MG, 1 DAILY WITH MEALS
  8. HYDROCORTISONE [Concomitant]
     Dosage: UNK , PRN
  9. ATACAND [Concomitant]
     Indication: HYPERTENSION
     Dosage: 16 MG, 1/2 DAILY

REACTIONS (15)
  - Dehydration [Fatal]
  - Eating disorder [Fatal]
  - Dementia Alzheimer^s type [Unknown]
  - Dementia [Unknown]
  - Auricular perichondritis [Unknown]
  - Hypernatraemia [Unknown]
  - Impaired fasting glucose [Unknown]
  - Weight decreased [Unknown]
  - Blood urea increased [Unknown]
  - Protein total decreased [Unknown]
  - Blood albumin decreased [Unknown]
  - Aspartate aminotransferase increased [Unknown]
  - Alanine aminotransferase increased [Unknown]
  - Blood creatinine increased [Unknown]
  - Hypertension [Unknown]
